FAERS Safety Report 15941098 (Version 2)
Quarter: 2019Q2

REPORT INFORMATION
  Report Type: Spontaneous
  Country: US (occurrence: US)
  Receive Date: 20190208
  Receipt Date: 20190503
  Transmission Date: 20190711
  Serious: Yes (Other)
  Sender: FDA-Public Use
  Company Number: US-ASTRAZENECA-2018SF33480

PATIENT
  Age: 26036 Day
  Sex: Male
  Weight: 81.2 kg

DRUGS (26)
  1. PRILOSEC [Suspect]
     Active Substance: OMEPRAZOLE MAGNESIUM
     Route: 048
     Dates: start: 20170406
  2. ALDACTONE [Concomitant]
     Active Substance: SPIRONOLACTONE
  3. ASPIRIN. [Concomitant]
     Active Substance: ASPIRIN
  4. CLOPIDOGREL [Concomitant]
     Active Substance: CLOPIDOGREL BISULFATE
  5. LISINOPRIL. [Concomitant]
     Active Substance: LISINOPRIL
  6. MELOXICAM. [Concomitant]
     Active Substance: MELOXICAM
  7. LIPITOR [Concomitant]
     Active Substance: ATORVASTATIN CALCIUM
     Route: 065
  8. RANITIDINE. [Concomitant]
     Active Substance: RANITIDINE
  9. ATENOLOL. [Concomitant]
     Active Substance: ATENOLOL
  10. PRILOSEC [Suspect]
     Active Substance: OMEPRAZOLE MAGNESIUM
     Route: 048
     Dates: start: 20101228, end: 20170406
  11. SIMVASTATIN. [Concomitant]
     Active Substance: SIMVASTATIN
  12. MELOXICAM. [Concomitant]
     Active Substance: MELOXICAM
  13. LISINOPRIL. [Concomitant]
     Active Substance: LISINOPRIL
  14. LANTUS [Concomitant]
     Active Substance: INSULIN GLARGINE
  15. CLOPIDOGREL [Concomitant]
     Active Substance: CLOPIDOGREL BISULFATE
  16. IBUPROFEN. [Concomitant]
     Active Substance: IBUPROFEN
     Route: 065
  17. ATORVASTATIN [Concomitant]
     Active Substance: ATORVASTATIN
  18. LEVOTHYROXINE. [Concomitant]
     Active Substance: LEVOTHYROXINE
  19. METOPROLOL. [Concomitant]
     Active Substance: METOPROLOL
  20. SIMVASTATIN. [Concomitant]
     Active Substance: SIMVASTATIN
  21. RANITIDINE. [Concomitant]
     Active Substance: RANITIDINE
  22. ATENOLOL. [Concomitant]
     Active Substance: ATENOLOL
  23. LISINOPRIL. [Concomitant]
     Active Substance: LISINOPRIL
  24. NIACIN. [Concomitant]
     Active Substance: NIACIN
     Route: 065
  25. CETRIZINE [Concomitant]
     Active Substance: CETIRIZINE HYDROCHLORIDE
  26. GABAPENTIN. [Concomitant]
     Active Substance: GABAPENTIN

REACTIONS (1)
  - Chronic kidney disease [Unknown]

NARRATIVE: CASE EVENT DATE: 20141106
